FAERS Safety Report 13460964 (Version 1)
Quarter: 2017Q2

REPORT INFORMATION
  Report Type: Spontaneous
  Country: US (occurrence: US)
  Receive Date: 20170419
  Receipt Date: 20170419
  Transmission Date: 20170830
  Serious: Yes (Other)
  Sender: FDA-Public Use
  Company Number: None

PATIENT
  Age: 60 Year
  Sex: Female
  Weight: 99 kg

DRUGS (11)
  1. LISINOPRIL. [Concomitant]
     Active Substance: LISINOPRIL
  2. METHOCARBAM [Concomitant]
  3. VITAMIN D3 [Concomitant]
     Active Substance: CHOLECALCIFEROL
  4. VITAMIN SUPER B COMPLEX [Concomitant]
  5. CELECOXIB/CELEBREX CAP 200MG [Suspect]
     Active Substance: CELECOXIB
     Indication: ARTHRITIS
     Dosage: ?          QUANTITY:1 CAPSULE(S);?
     Route: 048
     Dates: start: 20170112, end: 20170408
  6. METOPROLOL. [Concomitant]
     Active Substance: METOPROLOL
  7. HYDROCHLOROT [Concomitant]
     Active Substance: HYDROCHLOROTHIAZIDE
  8. OMEPRAZOLE. [Concomitant]
     Active Substance: OMEPRAZOLE
  9. PERCOCET [Concomitant]
     Active Substance: ACETAMINOPHEN\OXYCODONE HYDROCHLORIDE
  10. FISH OIL [Concomitant]
     Active Substance: FISH OIL
  11. CELECOXIB/CELEBREX CAP 200MG [Suspect]
     Active Substance: CELECOXIB
     Indication: OSTEOARTHRITIS
     Dosage: ?          QUANTITY:1 CAPSULE(S);?
     Route: 048
     Dates: start: 20170112, end: 20170408

REACTIONS (3)
  - Burning sensation [None]
  - Breast pain [None]
  - Breast mass [None]

NARRATIVE: CASE EVENT DATE: 20170317
